FAERS Safety Report 23455440 (Version 1)
Quarter: 2024Q1

REPORT INFORMATION
  Report Type: Spontaneous
  Country: US (occurrence: US)
  Receive Date: 20240130
  Receipt Date: 20240130
  Transmission Date: 20240409
  Serious: Yes (Other)
  Sender: FDA-Public Use
  Company Number: US-STRIDES ARCOLAB LIMITED-2023SP011836

PATIENT
  Age: 77 Year
  Sex: Male

DRUGS (4)
  1. METHOTREXATE [Suspect]
     Active Substance: METHOTREXATE
     Indication: Lichenoid keratosis
     Dosage: 12.5 MILLIGRAM, ONCE A WEEK
     Route: 065
  2. HALOBETASOL [Suspect]
     Active Substance: HALOBETASOL
     Indication: Lichenoid keratosis
     Dosage: UNK (DAILY)
     Route: 061
  3. PEMBROLIZUMAB [Concomitant]
     Active Substance: PEMBROLIZUMAB
     Indication: Clear cell renal cell carcinoma
     Dosage: UNK
     Route: 065
  4. PEMBROLIZUMAB [Concomitant]
     Active Substance: PEMBROLIZUMAB
     Dosage: UNK
     Route: 065

REACTIONS (1)
  - Drug ineffective for unapproved indication [Unknown]
